FAERS Safety Report 9098380 (Version 1)
Quarter: 2013Q1

REPORT INFORMATION
  Report Type: Spontaneous
  Country: FR (occurrence: FR)
  Receive Date: 20130213
  Receipt Date: 20130213
  Transmission Date: 20140127
  Serious: Yes (Life-Threatening)
  Sender: FDA-Public Use
  Company Number: FR-009507513-1302FRA001030

PATIENT
  Sex: Male

DRUGS (10)
  1. JANUMET [Suspect]
     Dosage: 1 DF, QD
     Route: 048
     Dates: end: 20121230
  2. DIAMICRON [Concomitant]
     Dosage: 60 MG, BID
     Route: 048
     Dates: end: 20121230
  3. KARDEGIC [Concomitant]
     Dosage: 75 MG, QD
     Route: 048
     Dates: end: 20121231
  4. CRESTOR [Concomitant]
     Dosage: 20 MG, QD
     Route: 048
     Dates: end: 20121231
  5. LERCAN [Concomitant]
     Dosage: 20 MG, QD
     Route: 048
     Dates: end: 20121231
  6. BISOPROLOL [Concomitant]
     Dosage: 5 MG, QD
     Route: 048
     Dates: end: 20121231
  7. MONO-TILDIEM [Concomitant]
     Dosage: UNK
     Route: 048
     Dates: end: 20121231
  8. RASILEZ [Concomitant]
     Dosage: UNK
     Route: 048
     Dates: end: 20121230
  9. TEMESTA [Concomitant]
     Dosage: UNK
     Route: 048
     Dates: end: 20121230
  10. CIFLOX (CIPROFLOXACIN HYDROCHLORIDE) [Concomitant]
     Indication: PROSTATITIS
     Dosage: UNK
     Dates: start: 20121220

REACTIONS (2)
  - Drug level increased [Recovered/Resolved]
  - Lactic acidosis [Recovered/Resolved]
